FAERS Safety Report 23423147 (Version 1)
Quarter: 2024Q1

REPORT INFORMATION
  Report Type: Report from Study
  Country: US (occurrence: None)
  Receive Date: 20240119
  Receipt Date: 20240119
  Transmission Date: 20240409
  Serious: Yes (Hospitalization)
  Sender: FDA-Public Use
  Company Number: 2024A011576

PATIENT
  Sex: Male
  Weight: 64.3 kg

DRUGS (2)
  1. CALQUENCE [Suspect]
     Active Substance: ACALABRUTINIB
     Indication: Mantle cell lymphoma
     Route: 048
     Dates: start: 20230918
  2. CALQUENCE [Suspect]
     Active Substance: ACALABRUTINIB
     Indication: Non-Hodgkin^s lymphoma stage IV
     Route: 048
     Dates: start: 20230918

REACTIONS (5)
  - Haematocrit decreased [Unknown]
  - Haematoma [Unknown]
  - Haemoglobin decreased [Unknown]
  - Weight decreased [Unknown]
  - Somnolence [Unknown]
